FAERS Safety Report 6869223-6 (Version None)
Quarter: 2010Q3

REPORT INFORMATION
  Report Type: 
  Country: None (occurrence: None)
  Receive Date: 20100722
  Receipt Date: 20080813
  Transmission Date: 20110219
  Serious: Yes (Other)
  Sender: FDA-Public Use
  Company Number: US-PFIZER INC-2008053849

PATIENT
  Sex: Female
  Weight: 41.7 kg

DRUGS (2)
  1. CHANTIX [Suspect]
     Indication: SMOKING CESSATION THERAPY
     Dates: start: 20071001
  2. TYLENOL [Concomitant]

REACTIONS (12)
  - ABNORMAL DREAMS [None]
  - ANXIETY [None]
  - CRYING [None]
  - DEPRESSION [None]
  - FEELING ABNORMAL [None]
  - HEADACHE [None]
  - MOOD SWINGS [None]
  - NAUSEA [None]
  - NIGHT SWEATS [None]
  - PSYCHIATRIC SYMPTOM [None]
  - VOMITING [None]
  - WEIGHT DECREASED [None]
